FAERS Safety Report 7536319-5 (Version None)
Quarter: 2011Q2

REPORT INFORMATION
  Report Type: 
  Country: None (occurrence: None)
  Receive Date: 20110609
  Receipt Date: 20110602
  Transmission Date: 20111010
  Serious: Yes (Hospitalization)
  Sender: FDA-Public Use
  Company Number: US-GILEAD-2011-0037392

PATIENT
  Sex: Male

DRUGS (13)
  1. LASIX [Concomitant]
  2. COLACE [Concomitant]
  3. ALDACTONE [Concomitant]
  4. AMBIEN [Concomitant]
  5. ZAROXOLYN [Concomitant]
  6. ZYLOPRIM [Concomitant]
  7. ASPIRIN [Concomitant]
  8. LANTUS [Concomitant]
  9. HUMALOG [Concomitant]
  10. LORTAB/VICODIN [Concomitant]
  11. LETAIRIS [Suspect]
     Indication: PULMONARY HYPERTENSION
     Route: 048
     Dates: start: 20090409
  12. PLAVIX [Concomitant]
  13. COREG [Concomitant]

REACTIONS (1)
  - GALLBLADDER DISORDER [None]
